FAERS Safety Report 6705683-9 (Version None)
Quarter: 2010Q2

REPORT INFORMATION
  Report Type: 
  Country: None (occurrence: None)
  Receive Date: 20100503
  Receipt Date: 20100421
  Transmission Date: 20101027
  Serious: Yes (Hospitalization)
  Sender: FDA-Public Use
  Company Number: FR-WYE-H14757910

PATIENT
  Age: 88 Year
  Sex: Female

DRUGS (9)
  1. CORDARONE [Suspect]
     Indication: ATRIAL FIBRILLATION
     Route: 048
     Dates: start: 20100301, end: 20100316
  2. MODOPAR [Concomitant]
     Dosage: (100 MG/25 MG) 125 MG 4 TIMES/DAY
  3. PREVISCAN [Concomitant]
     Indication: ATRIAL FIBRILLATION
     Dates: end: 20100316
  4. PREVISCAN [Concomitant]
     Dosage: NOT PROVIDED
     Dates: start: 20100320
  5. ZYRTEC [Concomitant]
  6. TAVANIC [Concomitant]
     Dosage: NOT PROVIDED
     Dates: start: 20100309, end: 20100314
  7. TANAKAN [Concomitant]
     Dosage: 1 UNIT EVERY 1 DAY
  8. DEROXAT [Suspect]
     Route: 048
     Dates: end: 20100316
  9. AUGMENTIN '125' [Concomitant]
     Dosage: NOT PROVIDED
     Dates: start: 20100301, end: 20100308

REACTIONS (4)
  - CONFUSIONAL STATE [None]
  - DELIRIUM [None]
  - EPILEPSY [None]
  - MYOCLONUS [None]
